FAERS Safety Report 18692298 (Version 2)
Quarter: 2021Q1

REPORT INFORMATION
  Report Type: Other
  Country: US (occurrence: US)
  Receive Date: 20210103
  Receipt Date: 20210208
  Transmission Date: 20210419
  Serious: No
  Sender: FDA-Public Use
  Company Number: US-AMAG PHARMACEUTICALS, INC.-AMAG202004185

PATIENT
  Age: 32 Year
  Sex: Female
  Weight: 74.91 kg

DRUGS (4)
  1. PHENERGAN [Concomitant]
     Active Substance: PROMETHAZINE HYDROCHLORIDE
     Indication: NAUSEA
     Dates: start: 20200812
  2. PNV [Concomitant]
     Indication: PREGNANCY
  3. MAKENA [Suspect]
     Active Substance: HYDROXYPROGESTERONE CAPROATE
     Indication: PREMATURE DELIVERY
     Route: 058
     Dates: start: 20201008, end: 20201112
  4. PHENERGAN [Concomitant]
     Active Substance: PROMETHAZINE HYDROCHLORIDE
     Indication: VOMITING

REACTIONS (10)
  - Musculoskeletal stiffness [Recovered/Resolved]
  - Headache [Unknown]
  - Pruritus [Unknown]
  - Anaemia [Not Recovered/Not Resolved]
  - Injection site bruising [Recovered/Resolved]
  - Pyelonephritis [Unknown]
  - Injection site pruritus [Not Recovered/Not Resolved]
  - Injection site pain [Recovered/Resolved]
  - Injection site mass [Recovered/Resolved]
  - Product dose omission issue [Unknown]

NARRATIVE: CASE EVENT DATE: 2020
